FAERS Safety Report 4658981-7 (Version None)
Quarter: 2005Q2

REPORT INFORMATION
  Report Type: 
  Country: None (occurrence: None)
  Receive Date: 20050509
  Receipt Date: 20050427
  Transmission Date: 20051028
  Serious: Yes (Hospitalization, Other)
  Sender: FDA-Public Use
  Company Number: A-US2004-08464

PATIENT
  Age: 52 Year
  Sex: Female
  Weight: 63.9 kg

DRUGS (5)
  1. TRACLEER [Suspect]
     Indication: PULMONARY HYPERTENSION
     Dosage: 62.5 MG, BID, ORAL
     Route: 048
     Dates: start: 20041130, end: 20041205
  2. TRACLEER [Suspect]
     Indication: PULMONARY HYPERTENSION
     Dosage: 62.5 MG, BID, ORAL
     Route: 048
     Dates: start: 20050127, end: 20050131
  3. LASIX (FURSEMIDE) [Concomitant]
  4. KCL (POTASSIUM CHLORIDE) [Concomitant]
  5. LEVOTHYROXINE SODIUM [Concomitant]

REACTIONS (15)
  - ALANINE AMINOTRANSFERASE INCREASED [None]
  - AMNESIA [None]
  - ANXIETY [None]
  - ASPARTATE AMINOTRANSFERASE INCREASED [None]
  - BLOOD ALKALINE PHOSPHATASE INCREASED [None]
  - DIARRHOEA [None]
  - HEPATITIS C ANTIBODY POSITIVE [None]
  - HICCUPS [None]
  - HYPERHIDROSIS [None]
  - JAUNDICE [None]
  - NAUSEA [None]
  - ORTHOPNOEA [None]
  - RECTAL HAEMORRHAGE [None]
  - STAPHYLOCOCCAL INFECTION [None]
  - SUBCUTANEOUS ABSCESS [None]
